FAERS Safety Report 16771489 (Version 3)
Quarter: 2019Q4

REPORT INFORMATION
  Report Type: Spontaneous
  Country: US (occurrence: US)
  Receive Date: 20190904
  Receipt Date: 20191002
  Transmission Date: 20200122
  Serious: No
  Sender: FDA-Public Use
  Company Number: US-PFIZER INC-2019374269

PATIENT
  Sex: Female

DRUGS (1)
  1. LYRICA [Suspect]
     Active Substance: PREGABALIN
     Dosage: UNK

REACTIONS (6)
  - Migraine [Unknown]
  - Dizziness [Unknown]
  - Fatigue [Unknown]
  - Withdrawal syndrome [Unknown]
  - Somnolence [Unknown]
  - Irritability [Unknown]
